FAERS Safety Report 14450100 (Version 1)
Quarter: 2018Q1

REPORT INFORMATION
  Report Type: Spontaneous
  Country: ID (occurrence: ID)
  Receive Date: 20180129
  Receipt Date: 20180129
  Transmission Date: 20180509
  Serious: Yes (Other)
  Sender: FDA-Public Use
  Company Number: ID-UNICHEM PHARMACEUTICALS (USA) INC-UCM201801-000018

PATIENT
  Age: 26 Year
  Sex: Male

DRUGS (4)
  1. CLOBAZAM [Concomitant]
     Active Substance: CLOBAZAM
  2. PHENYTOIN. [Concomitant]
     Active Substance: PHENYTOIN
  3. DIVALPROEX SODIUM. [Suspect]
     Active Substance: DIVALPROEX SODIUM
  4. CARBAMAZEPINE. [Concomitant]
     Active Substance: CARBAMAZEPINE

REACTIONS (3)
  - Seizure [Unknown]
  - Suicide attempt [Unknown]
  - Drug ineffective [Unknown]
